FAERS Safety Report 18502295 (Version 1)
Quarter: 2020Q4

REPORT INFORMATION
  Report Type: Other
  Country: US (occurrence: US)
  Receive Date: 20201113
  Receipt Date: 20201113
  Transmission Date: 20210114
  Serious: No
  Sender: FDA-Public Use
  Company Number: US-LEADIANT BIOSCIENCES INC-2019STPI000549

PATIENT

DRUGS (1)
  1. CYSTARAN [Suspect]
     Active Substance: CYSTEAMINE HYDROCHLORIDE
     Indication: CYSTINOSIS
     Dosage: UNK EVERY HOUR WHILE AWAKE
     Route: 047
     Dates: start: 20190703

REACTIONS (3)
  - Product use complaint [Unknown]
  - Eye irritation [Unknown]
  - Ocular hyperaemia [Unknown]
